FAERS Safety Report 11857592 (Version 1)
Quarter: 2015Q4

REPORT INFORMATION
  Report Type: Spontaneous
  Country: US (occurrence: US)
  Receive Date: 20151221
  Receipt Date: 20151221
  Transmission Date: 20160305
  Serious: Yes (Other)
  Sender: FDA-Public Use
  Company Number: US-ENDO PHARMACEUTICALS INC.-2015-005063

PATIENT
  Age: 55 Year
  Sex: Male
  Weight: 90.8 kg

DRUGS (3)
  1. HYDROCODONE BITARTRATE AND ACETAMINOPHEN [Suspect]
     Active Substance: ACETAMINOPHEN\HYDROCODONE BITARTRATE
     Dosage: 10 MG/325 MG
     Route: 048
     Dates: start: 201412, end: 201501
  2. FENTANYL. [Concomitant]
     Active Substance: FENTANYL
     Indication: PRODUCT USED FOR UNKNOWN INDICATION
     Dosage: 75
     Route: 065
     Dates: start: 2012
  3. HYDROCODONE BITARTRATE AND ACETAMINOPHEN [Suspect]
     Active Substance: ACETAMINOPHEN\HYDROCODONE BITARTRATE
     Indication: ARTHRALGIA
     Dosage: 10 MG/325 MG
     Route: 048
     Dates: start: 201510, end: 20151207

REACTIONS (9)
  - Loss of consciousness [Not Recovered/Not Resolved]
  - Pain [Recovered/Resolved]
  - Suicidal ideation [Recovered/Resolved]
  - General physical health deterioration [Not Recovered/Not Resolved]
  - Abasia [Not Recovered/Not Resolved]
  - Delusion [Not Recovered/Not Resolved]
  - Fall [Not Recovered/Not Resolved]
  - Abdominal discomfort [Recovering/Resolving]
  - Malaise [Recovered/Resolved]

NARRATIVE: CASE EVENT DATE: 201412
